FAERS Safety Report 21888602 (Version 1)
Quarter: 2023Q1

REPORT INFORMATION
  Report Type: Report from Study
  Country: US (occurrence: US)
  Receive Date: 20230120
  Receipt Date: 20230120
  Transmission Date: 20230418
  Serious: No
  Sender: FDA-Public Use
  Company Number: US-ABBVIE-4243023

PATIENT
  Sex: Female

DRUGS (1)
  1. SKYRIZI [Suspect]
     Active Substance: RISANKIZUMAB-RZAA
     Indication: Psoriasis
     Dosage: 150MG/ML, SUBCUTANEOUS INJECTION AT WEEK 0 (UNKNOWN START OF THERAPY BUT GREATER THEN 1 YEAR), WE...
     Route: 058

REACTIONS (2)
  - Therapeutic response shortened [Unknown]
  - Psoriasis [Unknown]
